FAERS Safety Report 8889602 (Version 1)
Quarter: 2012Q4

REPORT INFORMATION
  Report Type: 
  Country: TH (occurrence: TH)
  Receive Date: 20121107
  Receipt Date: 20121107
  Transmission Date: 20130627
  Serious: Yes (Other)
  Sender: FDA-Public Use
  Company Number: PHHY2012TH101516

PATIENT
  Age: 38 Year
  Sex: Female

DRUGS (2)
  1. BACLOFEN [Suspect]
     Indication: PROTRUSION TONGUE
  2. CLONAZEPAM [Suspect]
     Indication: PROTRUSION TONGUE

REACTIONS (7)
  - Oromandibular dystonia [Unknown]
  - Protrusion tongue [Unknown]
  - Blepharospasm [Unknown]
  - Dystonia [Unknown]
  - Dysgraphia [Unknown]
  - Eating disorder [Unknown]
  - Drug ineffective [Unknown]
